FAERS Safety Report 7617504-0 (Version None)
Quarter: 2011Q3

REPORT INFORMATION
  Report Type: 
  Country: None (occurrence: None)
  Receive Date: 20110718
  Receipt Date: 20110705
  Transmission Date: 20111222
  Serious: Yes (Hospitalization, Other)
  Sender: FDA-Public Use
  Company Number: FR-ELI_LILLY_AND_COMPANY-FR201107000768

PATIENT
  Sex: Female

DRUGS (10)
  1. CYMBALTA [Suspect]
     Indication: DEPRESSION
     Dosage: UNK
     Route: 048
  2. EQUANIL [Concomitant]
     Dosage: 250 MG, UNK
     Route: 048
  3. NEURONTIN [Concomitant]
     Dosage: 300 MG, TID
     Route: 048
  4. ZOLPIDEM [Concomitant]
     Dosage: 10 MG, QD
     Route: 048
  5. PREVISCAN [Concomitant]
     Indication: ATRIAL FIBRILLATION
     Dosage: UNK
     Dates: end: 20100915
  6. ATROVENT [Concomitant]
     Dosage: UNK
     Route: 048
  7. LAMISIL [Concomitant]
     Dosage: UNK
  8. ALDACTONE [Concomitant]
     Dosage: UNK
     Route: 048
  9. SOTALOL HCL [Concomitant]
     Dosage: UNK
  10. LOVENOX [Concomitant]
     Indication: ANTICOAGULANT THERAPY
     Dosage: 0.4 DF, UNK
     Dates: start: 20101001

REACTIONS (12)
  - FALL [None]
  - PRESYNCOPE [None]
  - DEEP VEIN THROMBOSIS [None]
  - HYPOVOLAEMIA [None]
  - RENAL IMPAIRMENT [None]
  - PAIN [None]
  - HYPONATRAEMIA [None]
  - ANAEMIA [None]
  - NECROSIS [None]
  - HAEMATOMA [None]
  - INTERNATIONAL NORMALISED RATIO INCREASED [None]
  - VITAMIN C DECREASED [None]
